FAERS Safety Report 23693314 (Version 1)
Quarter: 2024Q2

REPORT INFORMATION
  Report Type: Report from Study
  Country: GB (occurrence: GB)
  Receive Date: 20240401
  Receipt Date: 20240401
  Transmission Date: 20240716
  Serious: Yes (Other)
  Sender: FDA-Public Use
  Company Number: GB-SANDOZ-SDZ2024GB013883

PATIENT
  Age: 56 Year
  Sex: Female

DRUGS (1)
  1. HYRIMOZ [Suspect]
     Active Substance: ADALIMUMAB-ADAZ
     Indication: Rheumatoid arthritis
     Dosage: 40 MG, Q2W
     Route: 058
     Dates: start: 20240108

REACTIONS (6)
  - Haemorrhage [Unknown]
  - Joint range of motion decreased [Unknown]
  - Nausea [Recovering/Resolving]
  - Muscle spasms [Unknown]
  - Pain [Recovering/Resolving]
  - Muscle strain [Unknown]

NARRATIVE: CASE EVENT DATE: 20240324
